FAERS Safety Report 13160099 (Version 1)
Quarter: 2017Q1

REPORT INFORMATION
  Report Type: Report from Study
  Country: US (occurrence: US)
  Receive Date: 20170127
  Receipt Date: 20170127
  Transmission Date: 20170428
  Serious: Yes (Other)
  Sender: FDA-Public Use
  Company Number: US-SAOL THERAPEUTICS-2017SAO00151

PATIENT
  Age: 46 Year
  Sex: Male

DRUGS (2)
  1. COMPOUNDED BACLOFEN [Suspect]
     Active Substance: BACLOFEN
     Dosage: 5.813 ?G, \DAY
     Route: 037
     Dates: start: 20140918
  2. DILAUDID [Suspect]
     Active Substance: HYDROMORPHONE HYDROCHLORIDE
     Dosage: 3.100 MG, \DAY
     Route: 037
     Dates: start: 20140918

REACTIONS (4)
  - Implant site extravasation [Recovered/Resolved]
  - Implant site pain [Recovered/Resolved]
  - Device failure [Recovered/Resolved]
  - Catheter site pain [Recovered/Resolved]

NARRATIVE: CASE EVENT DATE: 20160209
